FAERS Safety Report 15180076 (Version 2)
Quarter: 2018Q4

REPORT INFORMATION
  Report Type: Spontaneous
  Country: US (occurrence: US)
  Receive Date: 20180723
  Receipt Date: 20181101
  Transmission Date: 20190204
  Serious: No
  Sender: FDA-Public Use
  Company Number: US-PFIZER INC-2018293803

PATIENT
  Sex: Female

DRUGS (5)
  1. LATANOPROST. [Suspect]
     Active Substance: LATANOPROST
     Indication: INTRAOCULAR PRESSURE INCREASED
     Dosage: 1 GTT (INTO EACH EYE), ONCE DAILY (AT BEDTIME)
     Route: 047
     Dates: start: 201011
  2. LEVOTHYROXINE. [Concomitant]
     Active Substance: LEVOTHYROXINE
     Dosage: 25 UG, ONCE DAILY
  3. LISINOPRIL. [Concomitant]
     Active Substance: LISINOPRIL
     Dosage: 10 MG, ONCE DAILY
  4. CITALOPRAM [Concomitant]
     Active Substance: CITALOPRAM HYDROBROMIDE
     Dosage: 20 MG, ONCE DAILY
  5. LATANOPROST. [Suspect]
     Active Substance: LATANOPROST
     Dosage: 1 GTT (INTO EACH EYE), ONCE DAILY (AT BEDTIME)
     Route: 047
     Dates: start: 20180821

REACTIONS (4)
  - Drug ineffective [Unknown]
  - Eye irritation [Unknown]
  - Vision blurred [Unknown]
  - Eye pruritus [Unknown]
